FAERS Safety Report 23270369 (Version 1)
Quarter: 2023Q4

REPORT INFORMATION
  Report Type: Report from Study
  Country: BE (occurrence: BE)
  Receive Date: 20231207
  Receipt Date: 20231207
  Transmission Date: 20240110
  Serious: Yes (Hospitalization)
  Sender: FDA-Public Use
  Company Number: BE-SERVIER-S23012161

PATIENT
  Age: 61 Year
  Sex: Female
  Weight: 63.7 kg

DRUGS (4)
  1. ONIVYDE [Suspect]
     Active Substance: IRINOTECAN HYDROCHLORIDE
     Indication: Ductal adenocarcinoma of pancreas
     Dosage: 43 MG/M2, ONCE EVERY TWO WEEKS
     Route: 042
     Dates: start: 20230822, end: 20231003
  2. FLUOROURACIL [Suspect]
     Active Substance: FLUOROURACIL
     Indication: Ductal adenocarcinoma of pancreas
     Dosage: 1800 MG/M2, ONCE EVERY TWO WEEKS
     Route: 042
     Dates: start: 20230822, end: 20231003
  3. LEUCOVORIN [Suspect]
     Active Substance: LEUCOVORIN\LEUCOVORIN CALCIUM
     Indication: Ductal adenocarcinoma of pancreas
     Dosage: 200 MG/M2, ONCE EVERY TWO WEEKS
     Route: 042
     Dates: start: 20230822, end: 20231003
  4. OXALIPLATIN [Suspect]
     Active Substance: OXALIPLATIN
     Indication: Ductal adenocarcinoma of pancreas
     Dosage: 45 MG/M2, ONCE EVERY TWO WEEKS
     Route: 042
     Dates: start: 20230822, end: 20231003

REACTIONS (8)
  - Malaise [Recovered/Resolved]
  - Diarrhoea [Recovered/Resolved]
  - Hypokalaemia [Recovered/Resolved]
  - Neutropenia [Recovered/Resolved]
  - Nausea [Recovered/Resolved]
  - Vomiting [Recovered/Resolved]
  - Hypoalbuminaemia [Recovered/Resolved]
  - Hypomagnesaemia [Recovered/Resolved]

NARRATIVE: CASE EVENT DATE: 20231008
